FAERS Safety Report 9097278 (Version 1)
Quarter: 2013Q1

REPORT INFORMATION
  Report Type: Spontaneous
  Country: FR (occurrence: FR)
  Receive Date: 20130212
  Receipt Date: 20130212
  Transmission Date: 20140127
  Serious: Yes (Other)
  Sender: FDA-Public Use
  Company Number: PHHY2013FR013449

PATIENT
  Sex: 0

DRUGS (8)
  1. AMOXICILLIN+CLAVULANATE [Suspect]
     Dosage: UNK UKN, UNK
     Route: 048
     Dates: start: 20080123, end: 20080123
  2. DEXTROPROPOXYPHENE/PARACETAMOL [Suspect]
     Indication: PAIN
     Dosage: 2 DF, TID
     Route: 048
     Dates: start: 20080122
  3. ESPERAL [Suspect]
     Indication: ALCOHOL ABUSE
     Dosage: 1 DF, QD
     Route: 048
     Dates: start: 20071025
  4. TERCIAN [Suspect]
     Dosage: 100 MG, QD
     Route: 048
     Dates: start: 20071221
  5. NOCTRAN [Suspect]
     Dosage: 1 DF, QD
     Route: 048
     Dates: start: 20080108
  6. AERIUS [Suspect]
     Indication: HYPERSENSITIVITY
     Dosage: 5 MG, QD
     Route: 048
     Dates: start: 20080110
  7. PROZAC [Suspect]
     Dosage: 20 MG, QD
     Route: 048
     Dates: start: 20080110
  8. ABILIFY [Suspect]
     Dosage: 10 MG, QD
     Route: 048
     Dates: start: 20080121

REACTIONS (3)
  - Hypotension [Recovered/Resolved]
  - Erythema [Recovered/Resolved]
  - Pruritus [Recovered/Resolved]
